FAERS Safety Report 6314294-9 (Version None)
Quarter: 2009Q3

REPORT INFORMATION
  Report Type: 
  Country: None (occurrence: None)
  Receive Date: 20090819
  Receipt Date: 20090811
  Transmission Date: 20100115
  Serious: No
  Sender: FDA-Public Use
  Company Number: US-BIOGENIDEC-2007BI022041

PATIENT
  Sex: Female

DRUGS (5)
  1. TYSABRI [Suspect]
     Indication: MULTIPLE SCLEROSIS
     Route: 042
     Dates: start: 20061228, end: 20080829
  2. AVONEX [Concomitant]
     Indication: MULTIPLE SCLEROSIS
  3. ZANAFLEX [Concomitant]
     Indication: MUSCLE SPASMS
  4. BACLOFEN [Concomitant]
     Indication: MUSCLE SPASMS
  5. LYRICA [Concomitant]
     Indication: MUSCLE SPASMS

REACTIONS (8)
  - FALL [None]
  - JOINT SPRAIN [None]
  - PAIN [None]
  - PAIN IN EXTREMITY [None]
  - RADIUS FRACTURE [None]
  - SINUSITIS [None]
  - VISION BLURRED [None]
  - WRIST FRACTURE [None]
